FAERS Safety Report 17924807 (Version 2)
Quarter: 2020Q3

REPORT INFORMATION
  Report Type: Spontaneous
  Country: JP (occurrence: JP)
  Receive Date: 20200622
  Receipt Date: 20200706
  Transmission Date: 20201103
  Serious: Yes (Other)
  Sender: FDA-Public Use
  Company Number: JP-ROCHE-2623348

PATIENT
  Age: 68 Year
  Sex: Male
  Weight: 53 kg

DRUGS (16)
  1. TREAKISYM [Concomitant]
     Active Substance: BENDAMUSTINE HYDROCHLORIDE
  2. TELMISARTAN. [Concomitant]
     Active Substance: TELMISARTAN
  3. CILNIDIPINE [Concomitant]
     Active Substance: CILNIDIPINE
  4. LEVOFLOXACIN. [Concomitant]
     Active Substance: LEVOFLOXACIN
  5. ACICLOVIR [Concomitant]
     Active Substance: ACYCLOVIR
  6. ESOMEPRAZOLE. [Concomitant]
     Active Substance: ESOMEPRAZOLE MAGNESIUM
  7. GLIMEPIRIDE. [Concomitant]
     Active Substance: GLIMEPIRIDE
  8. METGLUCO [Concomitant]
     Active Substance: METFORMIN HYDROCHLORIDE
  9. BENDAMUSTINE HYDROCHLORIDE. [Concomitant]
     Active Substance: BENDAMUSTINE HYDROCHLORIDE
  10. GAZYVA [Suspect]
     Active Substance: OBINUTUZUMAB
     Indication: B-CELL LYMPHOMA
     Route: 041
     Dates: start: 20200406, end: 20200611
  11. GAZYVA [Suspect]
     Active Substance: OBINUTUZUMAB
     Route: 042
     Dates: start: 20190627
  12. BAKTAR [Concomitant]
     Active Substance: SULFAMETHOXAZOLE\TRIMETHOPRIM
  13. TOMIRON [Concomitant]
     Active Substance: CEFTERAM PIVOXIL
  14. FML [Concomitant]
     Active Substance: FLUOROMETHOLONE
  15. METFORMIN HYDROCHLORIDE. [Concomitant]
     Active Substance: METFORMIN HYDROCHLORIDE
  16. EQUA [Concomitant]
     Active Substance: VILDAGLIPTIN

REACTIONS (1)
  - Cytomegalovirus chorioretinitis [Not Recovered/Not Resolved]

NARRATIVE: CASE EVENT DATE: 202005
